FAERS Safety Report 23472282 (Version 1)
Quarter: 2024Q1

REPORT INFORMATION
  Report Type: Spontaneous
  Country: FR (occurrence: FR)
  Receive Date: 20240202
  Receipt Date: 20240202
  Transmission Date: 20240409
  Serious: Yes (Hospitalization)
  Sender: FDA-Public Use
  Company Number: None

PATIENT
  Age: 92 Year
  Sex: Male
  Weight: 68.5 kg

DRUGS (3)
  1. CONFIDEX [Suspect]
     Active Substance: COAGULATION FACTOR IX HUMAN\COAGULATION FACTOR VII HUMAN\COAGULATION FACTOR X HUMAN\PROTEIN C\PROTEI
     Indication: Haemorrhage intracranial
     Dosage: 1700 UI
     Route: 042
     Dates: start: 20240111, end: 20240111
  2. CONFIDEX [Suspect]
     Active Substance: COAGULATION FACTOR IX HUMAN\COAGULATION FACTOR VII HUMAN\COAGULATION FACTOR X HUMAN\PROTEIN C\PROTEI
     Indication: Haemorrhage intracranial
     Dosage: 1700 UI
     Route: 042
     Dates: start: 20240111, end: 20240111
  3. VITAMIN K [Suspect]
     Active Substance: PHYTONADIONE
     Indication: Haemorrhage intracranial
     Dosage: 10 MG
     Route: 042
     Dates: start: 20240111, end: 20240111

REACTIONS (1)
  - Haemolytic anaemia [Recovering/Resolving]

NARRATIVE: CASE EVENT DATE: 20240112
